FAERS Safety Report 18170718 (Version 3)
Quarter: 2020Q4

REPORT INFORMATION
  Report Type: Spontaneous
  Country: US (occurrence: US)
  Receive Date: 20200819
  Receipt Date: 20201209
  Transmission Date: 20210113
  Serious: Yes (Other)
  Sender: FDA-Public Use
  Company Number: US-GILEAD-2020-0489845

PATIENT
  Age: 50 Year
  Sex: Male
  Weight: 98.87 kg

DRUGS (8)
  1. ODEFSEY [Concomitant]
     Active Substance: EMTRICITABINE\RILPIVIRINE HYDROCHLORIDE\TENOFOVIR ALAFENAMIDE FUMARATE
  2. COMBIVIR [Concomitant]
     Active Substance: LAMIVUDINE\ZIDOVUDINE
  3. SUSTIVA [Concomitant]
     Active Substance: EFAVIRENZ
  4. FERROUS SULFATE. [Concomitant]
     Active Substance: FERROUS SULFATE
  5. COMPLERA [Suspect]
     Active Substance: EMTRICITABINE\RILPIVIRINE HYDROCHLORIDE\TENOFOVIR DISOPROXIL FUMARATE
     Indication: HIV INFECTION
     Dosage: UNK
     Route: 048
     Dates: start: 201504, end: 201607
  6. VIRAMUNE [Concomitant]
     Active Substance: NEVIRAPINE
  7. TRAZODONE [Concomitant]
     Active Substance: TRAZODONE HYDROCHLORIDE
  8. RETROVIR [Concomitant]
     Active Substance: ZIDOVUDINE

REACTIONS (6)
  - Emotional distress [Unknown]
  - Anhedonia [Unknown]
  - Renal failure [Recovered/Resolved]
  - Anxiety [Unknown]
  - Chronic kidney disease [Not Recovered/Not Resolved]
  - Pain [Unknown]

NARRATIVE: CASE EVENT DATE: 20160729
